FAERS Safety Report 7630831-6 (Version None)
Quarter: 2011Q3

REPORT INFORMATION
  Report Type: 
  Country: None (occurrence: None)
  Receive Date: 20110723
  Receipt Date: 20110715
  Transmission Date: 20111222
  Serious: Yes (Other)
  Sender: FDA-Public Use
  Company Number: PL-ABBOTT-07P-129-0428119-00

PATIENT
  Age: 12 Year
  Sex: Female

DRUGS (5)
  1. PREDNISONE [Concomitant]
     Indication: NEPHROTIC SYNDROME
  2. CYCLOSPORINE [Interacting]
  3. CLARITHROMYCIN [Suspect]
     Indication: BRONCHITIS
     Dosage: STANDARD DOSE
  4. CYCLOSPORINE [Interacting]
     Indication: NEPHROTIC SYNDROME
     Route: 065
  5. AZATHIOPRINE [Concomitant]
     Indication: NEPHROTIC SYNDROME

REACTIONS (5)
  - RENAL FAILURE ACUTE [None]
  - DRUG INTERACTION [None]
  - NEPHROTIC SYNDROME [None]
  - RESPIRATORY TRACT INFECTION [None]
  - IMMUNOSUPPRESSANT DRUG LEVEL INCREASED [None]
